FAERS Safety Report 10471216 (Version 3)
Quarter: 2016Q1

REPORT INFORMATION
  Report Type: Spontaneous
  Country: US (occurrence: US)
  Receive Date: 20140923
  Receipt Date: 20160121
  Transmission Date: 20160525
  Serious: No
  Sender: FDA-Public Use
  Company Number: US-ENDO PHARMACEUTICALS INC.-OPCR20140188

PATIENT
  Sex: Female
  Weight: 103.06 kg

DRUGS (1)
  1. OPANA ER [Suspect]
     Active Substance: OXYMORPHONE HYDROCHLORIDE
     Indication: BACK PAIN
     Route: 048
     Dates: start: 20140421, end: 20140716

REACTIONS (2)
  - Intervertebral disc protrusion [Unknown]
  - Drug effect decreased [Unknown]
